FAERS Safety Report 9832477 (Version 6)
Quarter: 2017Q2

REPORT INFORMATION
  Report Type: Spontaneous
  Country: JP (occurrence: JP)
  Receive Date: 20140121
  Receipt Date: 20170509
  Transmission Date: 20170830
  Serious: Yes (Death)
  Sender: FDA-Public Use
  Company Number: JP-JNJFOC-20140106744

PATIENT
  Age: 64 Year
  Sex: Male

DRUGS (9)
  1. QUETIAPINE FUMARATE. [Concomitant]
     Active Substance: QUETIAPINE FUMARATE
     Indication: SCHIZOPHRENIA
     Route: 048
     Dates: start: 20130520, end: 20140109
  2. QUETIAPINE FUMARATE. [Concomitant]
     Active Substance: QUETIAPINE FUMARATE
     Indication: SCHIZOPHRENIA
     Route: 048
     Dates: start: 20130213, end: 20130519
  3. OMEPRAZOLE. [Concomitant]
     Active Substance: OMEPRAZOLE
     Route: 048
     Dates: start: 20131114
  4. ESTAZOLAM. [Concomitant]
     Active Substance: ESTAZOLAM
     Route: 048
     Dates: start: 20130213
  5. OMEPRAZOLE. [Concomitant]
     Active Substance: OMEPRAZOLE
     Route: 048
     Dates: start: 20130213
  6. FLUNITRAZEPAM [Concomitant]
     Active Substance: FLUNITRAZEPAM
     Route: 048
     Dates: start: 20130213
  7. SENNOSIDE [Concomitant]
     Active Substance: SENNOSIDES
     Route: 048
     Dates: start: 20130213
  8. XEPLION [Suspect]
     Active Substance: PALIPERIDONE PALMITATE
     Indication: SCHIZOPHRENIA
     Route: 030
     Dates: start: 20131226, end: 20131226
  9. PICOBEN [Concomitant]
     Route: 048
     Dates: start: 20130213

REACTIONS (1)
  - Death [Fatal]
